FAERS Safety Report 14672235 (Version 10)
Quarter: 2021Q3

REPORT INFORMATION
  Report Type: Other
  Country: GB (occurrence: GB)
  Receive Date: 20180323
  Receipt Date: 20210924
  Transmission Date: 20211014
  Serious: Yes (Hospitalization, Other)
  Sender: FDA-Public Use
  Company Number: GB-LUPIN PHARMACEUTICALS INC.-2017-02844

PATIENT
  Age: 17 Year
  Sex: Female

DRUGS (3)
  1. SERTRALINE HYDROCHLORIDE TABLETS [Suspect]
     Active Substance: SERTRALINE HYDROCHLORIDE
     Indication: PRODUCT USED FOR UNKNOWN INDICATION
     Dosage: 1000 MILLIGRAM (20 X 50 MG TABLETS), 20 DOSAGE FORM
     Route: 048
     Dates: start: 20170516
  2. QUETIAPINE TABLETS [Suspect]
     Active Substance: QUETIAPINE
     Indication: PRODUCT USED FOR UNKNOWN INDICATION
     Dosage: 5000 MILLIGRAM (50 X 100 MG TABLETS), 50 DOSAGE FORM
     Route: 048
     Dates: start: 20170516
  3. SERTRALINE HYDROCHLORIDE TABLETS [Suspect]
     Active Substance: SERTRALINE HYDROCHLORIDE
     Dosage: UNK (DOSE REDUCED)
     Route: 048

REACTIONS (3)
  - Sinus tachycardia [Recovered/Resolved]
  - Intentional overdose [Unknown]
  - Electrocardiogram QT prolonged [Recovered/Resolved]

NARRATIVE: CASE EVENT DATE: 20170516
